FAERS Safety Report 9242517 (Version 1)
Quarter: 2013Q2

REPORT INFORMATION
  Report Type: Spontaneous
  Country: DK (occurrence: FI)
  Receive Date: 20130419
  Receipt Date: 20130419
  Transmission Date: 20140414
  Serious: Yes (Other)
  Sender: FDA-Public Use
  Company Number: FI-FRI-1000044482

PATIENT
  Age: 23 Year
  Sex: Female

DRUGS (2)
  1. CITALOPRAM [Suspect]
     Indication: ANXIETY
     Dosage: 10 MG
     Route: 048
     Dates: start: 201109
  2. CITALOPRAM [Suspect]
     Indication: ANXIETY
     Dosage: 30 MG
     Route: 048
     Dates: end: 201303

REACTIONS (5)
  - Aggression [Not Recovered/Not Resolved]
  - Anger [Not Recovered/Not Resolved]
  - Aggression [Not Recovered/Not Resolved]
  - Suicidal behaviour [Not Recovered/Not Resolved]
  - Alcoholism [Not Recovered/Not Resolved]
